FAERS Safety Report 13569241 (Version 3)
Quarter: 2017Q2

REPORT INFORMATION
  Report Type: Spontaneous
  Country: US (occurrence: US)
  Receive Date: 20170522
  Receipt Date: 20170606
  Transmission Date: 20170830
  Serious: Yes (Hospitalization, Other)
  Sender: FDA-Public Use
  Company Number: US-MALLINCKRODT-T201702127

PATIENT
  Age: 12 Year
  Sex: Male
  Weight: 19 kg

DRUGS (6)
  1. GABLOFEN [Suspect]
     Active Substance: BACLOFEN
     Indication: MUSCLE SPASTICITY
     Dosage: 301.2 MCG/DAY
     Route: 037
  2. MELATONIN [Concomitant]
     Active Substance: MELATONIN
  3. BOTOX [Concomitant]
     Active Substance: ONABOTULINUMTOXINA
  4. QVAR [Concomitant]
     Active Substance: BECLOMETHASONE DIPROPIONATE
  5. PROVENTIL [Concomitant]
     Active Substance: ALBUTEROL
  6. SINEMET [Concomitant]
     Active Substance: CARBIDOPA\LEVODOPA

REACTIONS (7)
  - Pyrexia [Unknown]
  - Meningitis [Unknown]
  - Implant site swelling [Unknown]
  - Implant site infection [Unknown]
  - Cerebrospinal fluid leakage [Unknown]
  - Staphylococcal infection [Recovered/Resolved]
  - Vomiting [Unknown]

NARRATIVE: CASE EVENT DATE: 20170502
